FAERS Safety Report 6530698-3 (Version None)
Quarter: 2010Q1

REPORT INFORMATION
  Report Type: 
  Country: None (occurrence: None)
  Receive Date: 20100108
  Receipt Date: 20081201
  Transmission Date: 20100710
  Serious: No
  Sender: FDA-Public Use
  Company Number: A0758731A

PATIENT
  Sex: Female

DRUGS (1)
  1. LOVAZA [Suspect]
     Dosage: 4CAP PER DAY
     Route: 048
     Dates: start: 20081130

REACTIONS (3)
  - ABDOMINAL DISCOMFORT [None]
  - DRUG ADMINISTRATION ERROR [None]
  - NAUSEA [None]
